FAERS Safety Report 22112827 (Version 1)
Quarter: 2023Q1

REPORT INFORMATION
  Report Type: Spontaneous
  Country: US (occurrence: US)
  Receive Date: 20230320
  Receipt Date: 20230320
  Transmission Date: 20230418
  Serious: Yes (Other)
  Sender: FDA-Public Use
  Company Number: US-BRISTOL-MYERS SQUIBB COMPANY-2023-037594

PATIENT
  Age: 67 Year
  Sex: Male
  Weight: 105.23 kg

DRUGS (2)
  1. REVLIMID [Suspect]
     Active Substance: LENALIDOMIDE
     Indication: Plasma cell myeloma
     Dosage: 14D ON 7D OFF
     Route: 048
     Dates: start: 20221130, end: 20230313
  2. REVLIMID [Suspect]
     Active Substance: LENALIDOMIDE
     Dosage: 14D ON 7D OFF
     Route: 048
     Dates: start: 20221130, end: 20230313

REACTIONS (2)
  - Plasma cell myeloma [Unknown]
  - Off label use [Unknown]
